FAERS Safety Report 5332570-3 (Version None)
Quarter: 2007Q2

REPORT INFORMATION
  Report Type: 
  Country: None (occurrence: None)
  Receive Date: 20070523
  Receipt Date: 20070508
  Transmission Date: 20071010
  Serious: Yes (Hospitalization)
  Sender: FDA-Public Use
  Company Number: PL-SHR-PL-2006-025828

PATIENT
  Age: 28 Year
  Sex: Male

DRUGS (1)
  1. BETASERON [Suspect]
     Indication: MULTIPLE SCLEROSIS
     Dosage: 250 A?G, EVERY 2D
     Route: 058
     Dates: start: 20040928

REACTIONS (2)
  - DERMAL CYST [None]
  - MUSCULAR WEAKNESS [None]
